FAERS Safety Report 24923266 (Version 3)
Quarter: 2025Q1

REPORT INFORMATION
  Report Type: Spontaneous
  Country: US (occurrence: US)
  Receive Date: 20250204
  Receipt Date: 20250223
  Transmission Date: 20250409
  Serious: No
  Sender: SANOFI AVENTIS
  Company Number: US-SA-2025SA032753

PATIENT
  Age: 37 Year
  Sex: Female

DRUGS (2)
  1. DUPIXENT [Suspect]
     Active Substance: DUPILUMAB
     Route: 058
     Dates: start: 20241230
  2. DUPILUMAB [Suspect]
     Active Substance: DUPILUMAB

REACTIONS (7)
  - Eczema [Unknown]
  - Rash macular [Unknown]
  - Pain of skin [Unknown]
  - Erythema [Unknown]
  - Scab [Unknown]
  - Accidental exposure to product [Unknown]
  - Exposure via skin contact [Unknown]

NARRATIVE: CASE EVENT DATE: 20241230
